FAERS Safety Report 25441651 (Version 2)
Quarter: 2025Q3

REPORT INFORMATION
  Report Type: Report from Study
  Country: US (occurrence: US)
  Receive Date: 20250616
  Receipt Date: 20250929
  Transmission Date: 20251020
  Serious: Yes (Other)
  Sender: PFIZER
  Company Number: US-PFIZER INC-PV202500059417

PATIENT
  Age: 63 Year
  Sex: Male

DRUGS (7)
  1. BRAFTOVI [Suspect]
     Active Substance: ENCORAFENIB
     Indication: Malignant melanoma
     Dosage: 450 MG, 1X/DAY
     Route: 048
     Dates: start: 20250428, end: 202505
  2. BRAFTOVI [Suspect]
     Active Substance: ENCORAFENIB
     Dosage: 225MG (3-75MG CAPSULES) BY MOUTH ONCE DAILY
     Route: 048
     Dates: start: 202507
  3. MEKTOVI [Suspect]
     Active Substance: BINIMETINIB
     Indication: Malignant melanoma
     Dosage: 45 MG, 1X/DAY (3-15MG TABLETS) BY MOUTH ONCE DAILY
     Route: 048
     Dates: start: 20250428
  4. MEKTOVI [Suspect]
     Active Substance: BINIMETINIB
     Dosage: 45 MG, 1X/DAY (3-15MG TABLETS) BY MOUTH ONCE DAILY
     Route: 048
     Dates: end: 202505
  5. MEKTOVI [Suspect]
     Active Substance: BINIMETINIB
     Dosage: 30MG (2-15MG TABLETS) BY MOUTH ONCE DAILY
     Route: 048
     Dates: start: 202507
  6. TAFINLAR [Concomitant]
     Active Substance: DABRAFENIB MESYLATE
  7. MEKINIST [Concomitant]
     Active Substance: TRAMETINIB DIMETHYL SULFOXIDE

REACTIONS (10)
  - Neuropathy peripheral [Recovering/Resolving]
  - Fatigue [Recovering/Resolving]
  - Swelling [Recovering/Resolving]
  - Arthralgia [Recovering/Resolving]
  - Cold sweat [Not Recovered/Not Resolved]
  - Insomnia [Not Recovered/Not Resolved]
  - Asthenia [Not Recovered/Not Resolved]
  - Lymphoedema [Unknown]
  - Condition aggravated [Unknown]
  - Off label use [Unknown]

NARRATIVE: CASE EVENT DATE: 20250428
